FAERS Safety Report 5085717-0 (Version None)
Quarter: 2006Q3

REPORT INFORMATION
  Report Type: 
  Country: None (occurrence: None)
  Receive Date: 20060822
  Receipt Date: 20060814
  Transmission Date: 20061208
  Serious: Yes (Other)
  Sender: FDA-Public Use
  Company Number: LB-ROCHE-459841

PATIENT
  Age: 35 Year
  Sex: Female
  Weight: 60 kg

DRUGS (1)
  1. ACCUTANE [Suspect]
     Indication: ACNE
     Route: 048
     Dates: start: 20060101, end: 20060630

REACTIONS (3)
  - DRUG EXPOSURE BEFORE PREGNANCY [None]
  - NO ADVERSE EFFECT [None]
  - PREGNANCY [None]
